FAERS Safety Report 10272992 (Version 1)
Quarter: 2014Q1

REPORT INFORMATION
  Report Type: Spontaneous
  Country: US (occurrence: None)
  Receive Date: 20140306
  Receipt Date: 20140306
  Transmission Date: 20141002
  Serious: Yes (Other)
  Sender: FDA-Public Use
  Company Number: 163-21880-13062595

PATIENT
  Age: 79 Year
  Sex: Male
  Weight: 87.54 kg

DRUGS (9)
  1. REVLIMID (LENALIDOMIDE) (10 MILLIGRAM, CAPSULES) [Suspect]
     Indication: PLASMA CELL MYELOMA
     Route: 048
     Dates: start: 20121130
  2. DEXAMETHASONE (DEXAMETHASONE) (TABLETS) [Concomitant]
  3. AMBIEN (ZOLPIDEM TARTRATE) (TABLETS) [Concomitant]
  4. LIPITOR (ATORVASTATIN) (TABLETS) [Concomitant]
  5. GABAPENTIN (GABAPENTIN) (CAPSULES) [Concomitant]
  6. ACYCLOVIR (ACICLOVIR) (TABLETS) [Concomitant]
  7. NEXIUM DR (ESOMEPRAZOLE) (CAPSULES) [Concomitant]
  8. BACTRIM DS (BACTRIM) (TABLETS) [Concomitant]
  9. CALCIUM ACETATE (CALCIUM ACETATE) (TABLETS) [Concomitant]

REACTIONS (2)
  - Thrombosis [None]
  - Arthralgia [None]
